FAERS Safety Report 15714005 (Version 1)
Quarter: 2018Q4

REPORT INFORMATION
  Report Type: Spontaneous
  Country: US (occurrence: US)
  Receive Date: 20181212
  Receipt Date: 20181212
  Transmission Date: 20190205
  Serious: Yes (Other)
  Sender: FDA-Public Use
  Company Number: US-JNJFOC-20181206650

PATIENT
  Age: 58 Year
  Sex: Female
  Weight: 58.97 kg

DRUGS (2)
  1. DURAGESIC [Suspect]
     Active Substance: FENTANYL
     Indication: ROAD TRAFFIC ACCIDENT
     Route: 065
  2. DURAGESIC [Suspect]
     Active Substance: FENTANYL
     Indication: ROAD TRAFFIC ACCIDENT
     Route: 065

REACTIONS (4)
  - Product dose omission [Unknown]
  - Product availability issue [Unknown]
  - Incorrect product administration duration [Unknown]
  - Narcolepsy [Recovering/Resolving]

NARRATIVE: CASE EVENT DATE: 2018
